FAERS Safety Report 7044486-5 (Version None)
Quarter: 2010Q4

REPORT INFORMATION
  Report Type: 
  Country: None (occurrence: None)
  Receive Date: 20101008
  Receipt Date: 20101008
  Transmission Date: 20110411
  Serious: Yes (Other)
  Sender: FDA-Public Use
  Company Number: None

PATIENT
  Age: 65 Year
  Sex: Male

DRUGS (2)
  1. XELODA [Suspect]
     Indication: COLORECTAL CANCER
     Dosage: NOT PROVIDED
  2. AVASTIN [Concomitant]

REACTIONS (2)
  - DIARRHOEA [None]
  - NEUROPATHY PERIPHERAL [None]
